FAERS Safety Report 6695984-5 (Version None)
Quarter: 2010Q2

REPORT INFORMATION
  Report Type: 
  Country: None (occurrence: None)
  Receive Date: 20100423
  Receipt Date: 20100423
  Transmission Date: 20101027
  Serious: No
  Sender: FDA-Public Use
  Company Number: None

PATIENT
  Age: 79 Year
  Sex: Male

DRUGS (1)
  1. FORTEO [Suspect]
     Indication: OSTEOPOROSIS
     Dates: start: 20091104, end: 20100324

REACTIONS (4)
  - ERYTHEMA [None]
  - MUSCLE SPASMS [None]
  - OEDEMA PERIPHERAL [None]
  - PAIN IN EXTREMITY [None]
